FAERS Safety Report 6233745-1 (Version None)
Quarter: 2009Q2

REPORT INFORMATION
  Report Type: 
  Country: None (occurrence: None)
  Receive Date: 20090618
  Receipt Date: 20070619
  Transmission Date: 20091009
  Serious: Yes (Other)
  Sender: FDA-Public Use
  Company Number: US-ASTRAZENECA-2006UW25674

PATIENT
  Age: 45 Year
  Sex: Female
  Weight: 103 kg

DRUGS (18)
  1. SEROQUEL [Suspect]
     Indication: SCHIZOPHRENIA
     Route: 048
     Dates: start: 20040217
  2. SEROQUEL [Suspect]
     Indication: BIPOLAR DISORDER
     Route: 048
     Dates: start: 20040217
  3. SEROQUEL [Suspect]
     Indication: DEPRESSION
     Route: 048
     Dates: start: 20040217
  4. SEROQUEL [Suspect]
     Route: 048
  5. SEROQUEL [Suspect]
     Route: 048
  6. SEROQUEL [Suspect]
     Route: 048
  7. GEODON [Concomitant]
  8. HALDOL [Concomitant]
  9. NAVANE [Concomitant]
  10. RISPERDAL [Concomitant]
  11. STELAZINE [Concomitant]
  12. ZYPREXA [Concomitant]
  13. ACTOS [Concomitant]
     Dosage: 15-45 MG
     Route: 048
     Dates: start: 20040908
  14. AMBIEN [Concomitant]
     Dosage: 5-10 MG
     Route: 048
     Dates: start: 20040203
  15. DOXEPIN [Concomitant]
     Dosage: 75-200 MG
     Dates: start: 20040217
  16. BENICAR [Concomitant]
     Route: 048
     Dates: start: 20080312
  17. GLUCOPHAGE [Concomitant]
     Dates: start: 20040217
  18. NEURONTIN [Concomitant]
     Dates: start: 20081026

REACTIONS (5)
  - DIABETES MELLITUS [None]
  - DIABETIC COMA [None]
  - DIABETIC NEUROPATHY [None]
  - PANCREATITIS [None]
  - TARDIVE DYSKINESIA [None]
